FAERS Safety Report 18607714 (Version 1)
Quarter: 2020Q4

REPORT INFORMATION
  Report Type: Spontaneous
  Country: US (occurrence: US)
  Receive Date: 20201211
  Receipt Date: 20201211
  Transmission Date: 20210114
  Serious: Yes (Other)
  Sender: FDA-Public Use
  Company Number: US-SUNOVION-2020SUN003666

PATIENT
  Age: 78 Year
  Sex: Female

DRUGS (3)
  1. YUPELRI [Suspect]
     Active Substance: REVEFENACIN
  2. BROVANA [Suspect]
     Active Substance: ARFORMOTEROL TARTRATE
     Dosage: UNK
     Route: 055
  3. ALBUTEROL. [Suspect]
     Active Substance: ALBUTEROL

REACTIONS (8)
  - Choking [Unknown]
  - Chronic obstructive pulmonary disease [Unknown]
  - Secretion discharge [Unknown]
  - Visual impairment [Unknown]
  - Emphysema [Unknown]
  - Asthma [Unknown]
  - Dry mouth [Unknown]
  - Insomnia [Unknown]
